FAERS Safety Report 20682181 (Version 1)
Quarter: 2022Q2

REPORT INFORMATION
  Report Type: Spontaneous
  Country: IT (occurrence: IT)
  Receive Date: 20220407
  Receipt Date: 20220407
  Transmission Date: 20220721
  Serious: Yes (Other)
  Sender: FDA-Public Use
  Company Number: None

PATIENT
  Age: 70 Year
  Sex: Male
  Weight: 79 kg

DRUGS (9)
  1. FLUOROURACIL [Suspect]
     Active Substance: FLUOROURACIL
     Indication: Adenocarcinoma of colon
     Dosage: 582MG, FREQUENCY TIME 1CYCLICAL
     Route: 040
     Dates: start: 20211207
  2. FLUOROURACIL [Suspect]
     Active Substance: FLUOROURACIL
     Dosage: 3492MG, FREQUENCY TIME 1CYCLICAL
     Route: 030
     Dates: start: 20211207
  3. IRINOTECAN HYDROCHLORIDE [Suspect]
     Active Substance: IRINOTECAN HYDROCHLORIDE
     Indication: Adenocarcinoma of colon
     Dosage: 262MG, FREQUENCY TIME 1CYCLICAL
     Route: 042
     Dates: start: 20211207
  4. AFLIBERCEPT [Suspect]
     Active Substance: AFLIBERCEPT
     Indication: Adenocarcinoma of colon
     Dosage: 312MG, FREQUENCY TIME 1CYCLICAL
     Route: 042
     Dates: start: 20211207
  5. SILODOSIN [Concomitant]
     Active Substance: SILODOSIN
  6. ASPIRIN [Concomitant]
     Active Substance: ASPIRIN
  7. ZOLOFT [Concomitant]
     Active Substance: SERTRALINE HYDROCHLORIDE
  8. ESOMEPRAZOLE  KRKA [Concomitant]
  9. ATORVASTATIN  EG [Concomitant]

REACTIONS (2)
  - Neutropenia [Recovering/Resolving]
  - Asthenia [Recovering/Resolving]

NARRATIVE: CASE EVENT DATE: 20211228
